FAERS Safety Report 11126659 (Version 1)
Quarter: 2015Q2

REPORT INFORMATION
  Report Type: Spontaneous
  Country: US (occurrence: US)
  Receive Date: 20150520
  Receipt Date: 20150520
  Transmission Date: 20150821
  Serious: Yes (Other)
  Sender: FDA-Public Use
  Company Number: CHPA2015US006430

PATIENT
  Age: 58 Year
  Sex: Female

DRUGS (1)
  1. VOLTAREN [Suspect]
     Active Substance: DICLOFENAC SODIUM
     Indication: MUSCULOSKELETAL PAIN
     Dosage: AN INCH, BID
     Route: 061
     Dates: end: 201503

REACTIONS (4)
  - Intervertebral disc degeneration [Not Recovered/Not Resolved]
  - Sciatica [Not Recovered/Not Resolved]
  - Product use issue [Unknown]
  - Drug administered at inappropriate site [Unknown]
